FAERS Safety Report 11992239 (Version 1)
Quarter: 2016Q1

REPORT INFORMATION
  Report Type: Spontaneous
  Country: US (occurrence: US)
  Receive Date: 20160203
  Receipt Date: 20160203
  Transmission Date: 20160526
  Serious: No
  Sender: FDA-Public Use
  Company Number: US-JNJFOC-20151221806

PATIENT
  Age: 73 Year
  Sex: Male
  Weight: 122.47 kg

DRUGS (1)
  1. TYLENOL EXTRA STRENGTH [Suspect]
     Active Substance: ACETAMINOPHEN
     Indication: ARTHRALGIA
     Dosage: 1 CAPLET PER DAY AS NEEDED
     Route: 048
     Dates: start: 20151221

REACTIONS (2)
  - Underdose [Unknown]
  - Off label use [Unknown]
